FAERS Safety Report 5375129-4 (Version None)
Quarter: 2007Q2

REPORT INFORMATION
  Report Type: 
  Country: None (occurrence: None)
  Receive Date: 20070625
  Receipt Date: 20070306
  Transmission Date: 20071010
  Serious: Yes (Hospitalization)
  Sender: FDA-Public Use
  Company Number: 07P-163-0361152-00

PATIENT
  Age: 57 Year
  Sex: Female
  Weight: 52.6173 kg

DRUGS (2)
  1. HUMIRA [Suspect]
     Indication: RHEUMATOID ARTHRITIS
     Dosage: 40 MG, 1 IN 1 M, SUBCUTANEOUS
     Route: 058
     Dates: start: 20061101, end: 20061101
  2. PREDNISONE [Concomitant]

REACTIONS (2)
  - DYSPNOEA [None]
  - RASH [None]
